FAERS Safety Report 6575450-8 (Version None)
Quarter: 2010Q1

REPORT INFORMATION
  Report Type: 
  Country: None (occurrence: None)
  Receive Date: 20100209
  Receipt Date: 20100201
  Transmission Date: 20100710
  Serious: Yes (Hospitalization, Other)
  Sender: FDA-Public Use
  Company Number: ES-JNJFOC-20100110998

PATIENT
  Age: 20 Year
  Sex: Male
  Weight: 58 kg

DRUGS (4)
  1. REMICADE [Suspect]
     Indication: CROHN'S DISEASE
     Route: 042
     Dates: start: 20091021
  2. REMICADE [Suspect]
     Route: 042
     Dates: start: 20091021
  3. REMICADE [Suspect]
     Dosage: TOTAL NUMBER OF INFUSIONS = 3
     Route: 042
     Dates: start: 20091021
  4. AZATHIOPRINE [Suspect]
     Indication: IMMUNOSUPPRESSION

REACTIONS (3)
  - B-CELL LYMPHOMA [None]
  - ENTEROVESICAL FISTULA [None]
  - PERITONITIS [None]
